FAERS Safety Report 5220497-7 (Version None)
Quarter: 2007Q1

REPORT INFORMATION
  Report Type: 
  Country: None (occurrence: None)
  Receive Date: 20070125
  Receipt Date: 20070125
  Transmission Date: 20070707
  Serious: Yes (Hospitalization)
  Sender: FDA-Public Use
  Company Number: None

PATIENT
  Age: 39 Year
  Sex: Male

DRUGS (12)
  1. AMBIEN [Suspect]
     Indication: INSOMNIA
  2. ZYPREXA [Concomitant]
  3. LYRICA [Concomitant]
  4. PROZAC [Concomitant]
  5. CELEBREX [Concomitant]
  6. PREVACID [Concomitant]
  7. PLAQUENIL [Concomitant]
  8. NORVASC [Concomitant]
  9. MOTRIN [Concomitant]
  10. CATAPRES [Concomitant]
  11. ROZEREM [Concomitant]
  12. VISTARIL [Concomitant]

REACTIONS (2)
  - INCORRECT DOSE ADMINISTERED [None]
  - RESTLESSNESS [None]
